FAERS Safety Report 9706879 (Version 1)
Quarter: 2013Q4

REPORT INFORMATION
  Report Type: Spontaneous
  Country: US (occurrence: US)
  Receive Date: 20131125
  Receipt Date: 20131125
  Transmission Date: 20140711
  Serious: Yes (Other)
  Sender: FDA-Public Use
  Company Number: US-BAYER-2013-141756

PATIENT
  Age: 44 Year
  Sex: Female
  Weight: 84.81 kg

DRUGS (7)
  1. YASMIN [Suspect]
     Indication: ENDOMETRIAL HYPERPLASIA
     Dosage: UNK
     Dates: start: 20040626, end: 20060806
  2. YASMIN [Suspect]
     Indication: MENSTRUATION IRREGULAR
  3. PHENTERMINE [Concomitant]
     Dosage: 3705 MG, UNK
  4. NABUMETONE [Concomitant]
     Dosage: 500 MG, UNK
  5. PRILOSEC [Concomitant]
     Dosage: 40 MG, UNK
  6. HYDROCODONE W/APAP [Concomitant]
     Dosage: 10-500 MG
  7. VICODIN [Concomitant]

REACTIONS (4)
  - Deep vein thrombosis [None]
  - Pain in extremity [None]
  - Local swelling [None]
  - Off label use [None]
